FAERS Safety Report 9410254 (Version 1)
Quarter: 2013Q3

REPORT INFORMATION
  Report Type: Spontaneous
  Country: KR (occurrence: KR)
  Receive Date: 20130719
  Receipt Date: 20130719
  Transmission Date: 20140515
  Serious: Yes (Other)
  Sender: FDA-Public Use
  Company Number: KR-BAXTER-2013BAX027967

PATIENT
  Age: 71 Year
  Sex: Female

DRUGS (4)
  1. EXTRANEAL [Suspect]
     Indication: RENAL FAILURE CHRONIC
     Route: 033
     Dates: start: 201210, end: 201306
  2. EXTRANEAL [Suspect]
     Indication: PERITONEAL DIALYSIS
  3. PHYSIONEAL 1.5% [Suspect]
     Indication: RENAL FAILURE CHRONIC
     Route: 033
     Dates: start: 201210, end: 201306
  4. PHYSIONEAL 1.5% [Suspect]
     Indication: PERITONEAL DIALYSIS

REACTIONS (1)
  - Hyperlactacidaemia [Recovered/Resolved]
